FAERS Safety Report 16756325 (Version 2)
Quarter: 2019Q3

REPORT INFORMATION
  Report Type: Spontaneous
  Country: US (occurrence: US)
  Receive Date: 20190829
  Receipt Date: 20190910
  Transmission Date: 20191005
  Serious: Yes (Hospitalization, Other)
  Sender: FDA-Public Use
  Company Number: US-CELGENEUS-USA-20190808232

PATIENT
  Age: 40 Year
  Sex: Female

DRUGS (1)
  1. OTEZLA [Suspect]
     Active Substance: APREMILAST
     Indication: PSORIASIS
     Dosage: 60 MILLIGRAM
     Route: 048
     Dates: start: 201902

REACTIONS (3)
  - Ovarian cyst [Unknown]
  - Psoriasis [Recovered/Resolved]
  - Nephrolithiasis [Unknown]

NARRATIVE: CASE EVENT DATE: 2019
